FAERS Safety Report 9207628 (Version 11)
Quarter: 2021Q2

REPORT INFORMATION
  Report Type: Spontaneous
  Country: US (occurrence: US)
  Receive Date: 20130403
  Receipt Date: 20210614
  Transmission Date: 20210717
  Serious: Yes (Hospitalization, Other)
  Sender: FDA-Public Use
  Company Number: US-PFIZER INC-2013106383

PATIENT
  Age: 61 Year
  Sex: Female
  Weight: 60 kg

DRUGS (11)
  1. LEXAPRO [Concomitant]
     Active Substance: ESCITALOPRAM OXALATE
     Dosage: UNK
  2. SYNTHROID [Concomitant]
     Active Substance: LEVOTHYROXINE SODIUM
     Dosage: 0.175 MG, 1X/DAY
  3. PREDNISOLONE. [Concomitant]
     Active Substance: PREDNISOLONE
     Dosage: 5 MG, 1X/DAY
  4. LYRICA [Suspect]
     Active Substance: PREGABALIN
     Indication: NEURALGIA
     Dosage: 50 MG, TWICE A DAY
  5. LYRICA [Suspect]
     Active Substance: PREGABALIN
     Indication: NEPHROPATHY
     Dosage: 50 MG, TWICE A DAY
     Dates: start: 201210
  6. LYRICA [Suspect]
     Active Substance: PREGABALIN
     Dosage: 50 MG, TWICE A DAY
  7. ACETAMINOPHEN W/OXYCODONE [Concomitant]
     Active Substance: ACETAMINOPHEN\OXYCODONE HYDROCHLORIDE
     Dosage: UNK, 4X/DAY
  8. METHOTREXATE. [Concomitant]
     Active Substance: METHOTREXATE
     Dosage: 15.0 MG, WEEKLY (SIX 2.5 MG TABLETS ONCE A WEEK)
  9. CLONAZEPAM. [Concomitant]
     Active Substance: CLONAZEPAM
     Dosage: 2 MG, DAILY
  10. LYRICA [Suspect]
     Active Substance: PREGABALIN
     Dosage: 50 MG, TWICE A DAY
  11. FOLIC ACID. [Concomitant]
     Active Substance: FOLIC ACID
     Dosage: 1000 MG, DAILY

REACTIONS (21)
  - Fall [Unknown]
  - Blindness [Unknown]
  - Hand deformity [Unknown]
  - Memory impairment [Unknown]
  - Drug effective for unapproved indication [Unknown]
  - Joint swelling [Unknown]
  - Synovial cyst [Unknown]
  - Product use in unapproved indication [Unknown]
  - Road traffic accident [Unknown]
  - Amnesia [Unknown]
  - Intentional product misuse [Unknown]
  - Rotator cuff syndrome [Unknown]
  - Pain in extremity [Unknown]
  - Off label use [Unknown]
  - Pain [Unknown]
  - Anxiety [Unknown]
  - Gait inability [Unknown]
  - Weight decreased [Unknown]
  - Headache [Not Recovered/Not Resolved]
  - Lower limb fracture [Unknown]
  - Upper limb fracture [Unknown]

NARRATIVE: CASE EVENT DATE: 20120907
